FAERS Safety Report 5654516-0 (Version None)
Quarter: 2008Q1

REPORT INFORMATION
  Report Type: 
  Country: None (occurrence: None)
  Receive Date: 20080307
  Receipt Date: 20080222
  Transmission Date: 20080703
  Serious: Yes (Other)
  Sender: FDA-Public Use
  Company Number: FR-BAYER-200814207GPV

PATIENT
  Sex: Female

DRUGS (1)
  1. IZILOX [Suspect]
     Indication: SINUSITIS
     Route: 065

REACTIONS (1)
  - LIGAMENT RUPTURE [None]
